FAERS Safety Report 25645041 (Version 1)
Quarter: 2025Q3

REPORT INFORMATION
  Report Type: Report from Study
  Country: US (occurrence: US)
  Receive Date: 20250805
  Receipt Date: 20250805
  Transmission Date: 20251020
  Serious: Yes (Hospitalization)
  Sender: ABBVIE
  Company Number: US-ABBVIE-6326816

PATIENT
  Age: 62 Year
  Sex: Male

DRUGS (2)
  1. RINVOQ [Suspect]
     Active Substance: UPADACITINIB
     Indication: Crohn^s disease
     Route: 048
     Dates: start: 20250430
  2. RINVOQ [Suspect]
     Active Substance: UPADACITINIB
     Indication: Crohn^s disease
     Route: 048
     Dates: start: 20250423

REACTIONS (8)
  - Sepsis [Unknown]
  - Acne [Not Recovered/Not Resolved]
  - Umbilical hernia [Not Recovered/Not Resolved]
  - Prostatic disorder [Unknown]
  - Furuncle [Unknown]
  - Renal cyst [Not Recovered/Not Resolved]
  - Renal atrophy [Unknown]
  - Illness [Unknown]

NARRATIVE: CASE EVENT DATE: 20250101
